FAERS Safety Report 7977156-7 (Version None)
Quarter: 2011Q4

REPORT INFORMATION
  Report Type: 
  Country: None (occurrence: None)
  Receive Date: 20111213
  Receipt Date: 20111114
  Transmission Date: 20120403
  Serious: No
  Sender: FDA-Public Use
  Company Number: US-AMGEN-USASP2011060187

PATIENT
  Age: 36 Year
  Sex: Female

DRUGS (1)
  1. ENBREL [Suspect]
     Indication: RHEUMATOID ARTHRITIS
     Dosage: 25 MG, 2 TIMES/WK

REACTIONS (11)
  - MUSCULOSKELETAL CHEST PAIN [None]
  - CHEST DISCOMFORT [None]
  - RHEUMATOID ARTHRITIS [None]
  - LIP SWELLING [None]
  - DYSPNOEA [None]
  - BACK PAIN [None]
  - COUGH [None]
  - SINUSITIS [None]
  - DIZZINESS [None]
  - HEART RATE INCREASED [None]
  - MALAISE [None]
